FAERS Safety Report 10559295 (Version 1)
Quarter: 2014Q4

REPORT INFORMATION
  Report Type: Spontaneous
  Country: US (occurrence: US)
  Receive Date: 20141103
  Receipt Date: 20141103
  Transmission Date: 20150529
  Serious: No
  Sender: FDA-Public Use
  Company Number: US-BIOGENIDEC-2014BI113698

PATIENT
  Age: 60 Year
  Sex: Male

DRUGS (17)
  1. ESCITALOPRAM OXALATE. [Concomitant]
     Active Substance: ESCITALOPRAM OXALATE
  2. TYLENOL 8 HR [Concomitant]
     Active Substance: ACETAMINOPHEN
  3. AVONEX [Suspect]
     Active Substance: INTERFERON BETA-1A
     Indication: MULTIPLE SCLEROSIS
     Route: 030
     Dates: start: 20140226
  4. AGGRENOX [Concomitant]
     Active Substance: ASPIRIN\DIPYRIDAMOLE
  5. METFORMIN HCI ER (OSM) [Concomitant]
  6. CLOPIDOGREL BISULFATE. [Concomitant]
     Active Substance: CLOPIDOGREL BISULFATE
  7. NITROGLYCERINE ER [Concomitant]
  8. TIZANIDINE HCI [Concomitant]
     Active Substance: TIZANIDINE HYDROCHLORIDE
  9. CALCIUM+D [Concomitant]
  10. BUSPIROME HCI [Concomitant]
  11. ASPIR LOW [Concomitant]
     Active Substance: ASPIRIN
  12. HYDROCODONE-ACCETAMINOPHEN [Concomitant]
  13. AMITRIPTYLINE HCI [Concomitant]
  14. ALMODIPINE BESYBENAZEPRIL HCI [Concomitant]
  15. ATORVASTATIN CALCIUM. [Concomitant]
     Active Substance: ATORVASTATIN CALCIUM
  16. DIOVAN [Concomitant]
     Active Substance: VALSARTAN
  17. PREDNISOLONE SODIUM PHOSPHATE. [Concomitant]
     Active Substance: PREDNISOLONE SODIUM PHOSPHATE

REACTIONS (2)
  - Musculoskeletal stiffness [Unknown]
  - Coordination abnormal [Unknown]
